FAERS Safety Report 5940274-9 (Version None)
Quarter: 2008Q4

REPORT INFORMATION
  Report Type: 
  Country: None (occurrence: None)
  Receive Date: 20081030
  Receipt Date: 20081017
  Transmission Date: 20090506
  Serious: Yes (Other)
  Sender: FDA-Public Use
  Company Number: 2008AL011447

PATIENT
  Age: 65 Year
  Sex: Male

DRUGS (11)
  1. RANITIDINE [Suspect]
     Indication: GASTRIC PH DECREASED
     Dosage: 150 MG;QD
  2. RAMIPRIL [Suspect]
     Indication: HYPERTENSION
     Dosage: 10 MG;QD
  3. ACETAMINOPHEN AND CODEINE PHOSPHATE [Suspect]
     Indication: ARTHRITIS
  4. ALLOPURINOL [Concomitant]
  5. SIMVASTATIN [Concomitant]
  6. AMINOPHYLLINE [Concomitant]
  7. ACETYLSALICYLIC ACID SRT [Concomitant]
  8. ALBUTEROL SULFATE [Concomitant]
  9. CALCICHEW D3 [Concomitant]
  10. SERETIDE [Concomitant]
  11. FRUSEMIDE [Concomitant]

REACTIONS (6)
  - DYSPNOEA [None]
  - INSOMNIA [None]
  - LOWER RESPIRATORY TRACT INFECTION [None]
  - MOVEMENT DISORDER [None]
  - NASOPHARYNGITIS [None]
  - RESTLESSNESS [None]
